FAERS Safety Report 5866241-1 (Version None)
Quarter: 2008Q3

REPORT INFORMATION
  Report Type: 
  Country: None (occurrence: None)
  Receive Date: 20080829
  Receipt Date: 20080820
  Transmission Date: 20090109
  Serious: Yes (Other)
  Sender: FDA-Public Use
  Company Number: PT-PFIZER INC-2008070322

PATIENT
  Age: 40 Year
  Sex: Female

DRUGS (1)
  1. CHANTIX [Suspect]
     Indication: SMOKING CESSATION THERAPY

REACTIONS (1)
  - BREAST CYST [None]
